FAERS Safety Report 20180177 (Version 2)
Quarter: 2022Q1

REPORT INFORMATION
  Report Type: Spontaneous
  Country: PL (occurrence: PL)
  Receive Date: 20211214
  Receipt Date: 20220315
  Transmission Date: 20220424
  Serious: Yes (Hospitalization, Other)
  Sender: FDA-Public Use
  Company Number: PL-MLMSERVICE-20211125-3241482-1

PATIENT
  Age: 33 Year
  Sex: Male

DRUGS (1)
  1. ANASTROZOLE [Suspect]
     Active Substance: ANASTROZOLE
     Indication: Product used for unknown indication

REACTIONS (4)
  - Cardiac hypertrophy [Unknown]
  - Acute kidney injury [Recovered/Resolved]
  - Hypertension [Unknown]
  - Cardiac failure acute [Unknown]
